FAERS Safety Report 18841225 (Version 1)
Quarter: 2021Q1

REPORT INFORMATION
  Report Type: Report from Study
  Country: ZA (occurrence: ZA)
  Receive Date: 20210203
  Receipt Date: 20210203
  Transmission Date: 20210419
  Serious: Yes (Other)
  Sender: FDA-Public Use
  Company Number: ZA-ASTRAZENECA-2021A021700

PATIENT
  Age: 24045 Day
  Sex: Male
  Weight: 76 kg

DRUGS (10)
  1. METFORMIN [Concomitant]
     Active Substance: METFORMIN HYDROCHLORIDE
     Dosage: 500.0MG UNKNOWN
  2. ATENOLOL. [Concomitant]
     Active Substance: ATENOLOL
  3. FORXIGA [Suspect]
     Active Substance: DAPAGLIFLOZIN
     Indication: TYPE 2 DIABETES MELLITUS
     Route: 048
     Dates: start: 20191001
  4. AMLODIPINE [Concomitant]
     Active Substance: AMLODIPINE BESYLATE
  5. RIDAQ [Concomitant]
     Active Substance: HYDROCHLOROTHIAZIDE
  6. BEZAFIBRATE SR [Concomitant]
  7. MYOPRIN [Concomitant]
     Active Substance: ASPIRIN
  8. ALAPREN [Concomitant]
     Active Substance: ENALAPRIL MALEATE
  9. ASPAVOR [Concomitant]
     Active Substance: ATORVASTATIN
  10. HUMILIN 30/70 [Concomitant]
     Dosage: 30/70 44/30U BD,

REACTIONS (1)
  - Glomerular filtration rate abnormal [Unknown]

NARRATIVE: CASE EVENT DATE: 20200911
